FAERS Safety Report 7272374-8 (Version None)
Quarter: 2010Q4

REPORT INFORMATION
  Report Type: 
  Country: None (occurrence: None)
  Receive Date: 20101213
  Receipt Date: 20100111
  Transmission Date: 20110411
  Serious: Yes (Other)
  Sender: FDA-Public Use
  Company Number: US-JNJFOC-20100105223

PATIENT
  Age: 44 Year
  Sex: Male
  Weight: 90.7194 kg

DRUGS (3)
  1. PEPCID COMPLETE [Suspect]
     Indication: DYSPEPSIA
     Dosage: 62 DOSE(S), ORAL
     Route: 048
     Dates: start: 20100108, end: 20100111
  2. PAIN MEDICATION (ANALGESICS) [Concomitant]
  3. MUSCLE RELAXANT (MUSCLE RELAXANTS) [Concomitant]

REACTIONS (1)
  - INTENTIONAL OVERDOSE [None]
